FAERS Safety Report 17875657 (Version 7)
Quarter: 2021Q4

REPORT INFORMATION
  Report Type: Report from Study
  Country: DE (occurrence: DE)
  Receive Date: 20200609
  Receipt Date: 20211201
  Transmission Date: 20220303
  Serious: Yes (Hospitalization, Other)
  Sender: FDA-Public Use
  Company Number: DE-ROCHE-2252586

PATIENT
  Age: 32 Year
  Sex: Female
  Weight: 160 kg

DRUGS (11)
  1. FENTANYL [Suspect]
     Active Substance: FENTANYL
     Indication: Multiple sclerosis relapse
     Dosage: 75 MICROGRAM
     Route: 065
  2. FENTANYL [Suspect]
     Active Substance: FENTANYL
     Dosage: 50 MICROGRAM, Q3D
     Route: 065
  3. OCREVUS [Suspect]
     Active Substance: OCRELIZUMAB
     Indication: Relapsing-remitting multiple sclerosis
     Dosage: 300 MILLIGRAM/ START DATE:01-JUN-2018
     Route: 042
  4. OCREVUS [Suspect]
     Active Substance: OCRELIZUMAB
     Dosage: MAINTENANCE DOSE/ START DATE;08-JAN-2019
     Route: 042
  5. OCREVUS [Suspect]
     Active Substance: OCRELIZUMAB
     Dosage: SECOND INITIAL DOSE/ START DATE: 15-JUN-2018
     Route: 042
  6. OCREVUS [Suspect]
     Active Substance: OCRELIZUMAB
     Dosage: 600 MILLIGRAM/ START DATE: 18-JAN-2021
     Route: 042
  7. OCREVUS [Suspect]
     Active Substance: OCRELIZUMAB
     Dosage: 600 MILLIGRAM/ START DATE: 15-JUL-2021
     Route: 042
  8. SPIRONOLACTONE [Concomitant]
     Active Substance: SPIRONOLACTONE
     Dosage: 25 MILLIGRAM, QD (1-0-0)
  9. EUTHYROX [Concomitant]
     Active Substance: LEVOTHYROXINE SODIUM
     Dosage: 75 MICROGRAM, QD (1-0-0)
  10. CARVEDILOL [Concomitant]
     Active Substance: CARVEDILOL
     Dosage: 1-0-1, (0.5 DAY)
  11. ENTRESTO [Concomitant]
     Active Substance: SACUBITRIL\VALSARTAN
     Dosage: 100 MILLIGRAM (97/103 MG)

REACTIONS (18)
  - Multiple sclerosis relapse [Recovered/Resolved]
  - Nasopharyngitis [Recovered/Resolved]
  - Poor peripheral circulation [Not Recovered/Not Resolved]
  - Restlessness [Recovered/Resolved]
  - Myalgia [Recovered/Resolved]
  - Blood pressure decreased [Not Recovered/Not Resolved]
  - Pharyngeal swelling [Recovered/Resolved]
  - Sleep disorder [Recovered/Resolved]
  - Decreased appetite [Recovering/Resolving]
  - Muscle tightness [Recovered/Resolved]
  - Pain in extremity [Recovering/Resolving]
  - Gait disturbance [Recovered/Resolved]
  - Nausea [Recovered/Resolved]
  - Dizziness [Recovered/Resolved]
  - Pyrexia [Recovered/Resolved]
  - Abdominal pain upper [Recovering/Resolving]
  - Hypokinesia [Recovered/Resolved]
  - Pharyngeal hypoaesthesia [Recovered/Resolved]

NARRATIVE: CASE EVENT DATE: 20180601
